FAERS Safety Report 4653982-7 (Version None)
Quarter: 2005Q2

REPORT INFORMATION
  Report Type: 
  Country: None (occurrence: None)
  Receive Date: 20050404
  Receipt Date: 20041201
  Transmission Date: 20051028
  Serious: No
  Sender: FDA-Public Use
  Company Number: USA041284946

PATIENT
  Age: 85 Year
  Sex: Female

DRUGS (6)
  1. CYMBALTA [Suspect]
     Dosage: 60 MG
     Dates: start: 20041130
  2. LIPITOR [Concomitant]
  3. GLUCOPHAGE XR (METFORMIN HYDROCHLORIDE) [Concomitant]
  4. AMARYL [Concomitant]
  5. AVALIDE [Concomitant]
  6. NEXIUM [Concomitant]

REACTIONS (3)
  - INSOMNIA [None]
  - THINKING ABNORMAL [None]
  - TREMOR [None]
